FAERS Safety Report 6130978-X (Version None)
Quarter: 2009Q1

REPORT INFORMATION
  Report Type: 
  Country: None (occurrence: None)
  Receive Date: 20090323
  Receipt Date: 20090305
  Transmission Date: 20090719
  Serious: Yes (Hospitalization)
  Sender: FDA-Public Use
  Company Number: 187848ISR

PATIENT
  Age: 66 Year
  Sex: Male

DRUGS (12)
  1. BISOPROLOL FUMARATE [Suspect]
     Dosage: 1 DOSAGE FORMS (1.25 MG,1 IN 1 D) ORAL
     Route: 048
     Dates: start: 20080506, end: 20080529
  2. VANCOMYCIN HYDROCHLORIDE [Suspect]
     Dosage: 2 GRAM (2 GRAM,1 IN 1 D) INTRAVENOUS (NOT OTHERWISE SPECIFIED)
     Route: 042
     Dates: start: 20080502, end: 20080529
  3. RIFAMPICIN [Suspect]
     Indication: ENDOCARDITIS
     Dosage: 6 DOSAGE FORMS (2 IN 1 D) ORAL
     Route: 048
     Dates: start: 20080515, end: 20080527
  4. RAMIPRIL [Suspect]
     Indication: CARDIAC FAILURE
     Dosage: 2.5 MG (2.5 MG,1 IN 1 D) ORAL
     Route: 048
     Dates: start: 20080517, end: 20080529
  5. ATORVASTATIN CALCIUM [Suspect]
     Indication: HYPERCHOLESTEROLAEMIA
     Dosage: 1 DOSAGE FORMS (10 MG,1 IN 1 D) ORAL
     Route: 048
     Dates: end: 20080529
  6. HYDROXYZINE [Suspect]
     Indication: ANXIETY
     Dosage: 25 MG (25 MG,1 IN 1 D) ORAL
     Route: 048
     Dates: start: 20080310, end: 20080529
  7. BROMAZEPAM [Suspect]
     Indication: ANXIETY
     Dosage: 0.5 MG (0.5 MG,1 IN 1 D) ORAL
     Route: 048
     Dates: start: 20080517, end: 20080529
  8. PANTOPRAZOLE SODIUM [Suspect]
     Indication: PROPHYLAXIS
     Dosage: ORAL
     Route: 048
     Dates: start: 20080515, end: 20080529
  9. ACETYLSALICYLATE LYSINE [Concomitant]
  10. FUROSEMIDE [Suspect]
  11. SINEMET [Concomitant]
  12. STALEVO 100 [Concomitant]

REACTIONS (11)
  - ABSCESS [None]
  - ANAEMIA [None]
  - AORTIC VALVE INCOMPETENCE [None]
  - CARDIAC VALVE ABSCESS [None]
  - CELL DEATH [None]
  - CHOLESTASIS [None]
  - DEVICE FAILURE [None]
  - DRUG RASH WITH EOSINOPHILIA AND SYSTEMIC SYMPTOMS [None]
  - ENDOCARDITIS [None]
  - RENAL FAILURE ACUTE [None]
  - TOXIC SKIN ERUPTION [None]
